FAERS Safety Report 10625047 (Version 1)
Quarter: 2014Q4

REPORT INFORMATION
  Report Type: Spontaneous
  Country: US (occurrence: US)
  Receive Date: 20141204
  Receipt Date: 20141204
  Transmission Date: 20150529
  Serious: No
  Sender: FDA-Public Use
  Company Number: US-BIOGENIDEC-2014BI126135

PATIENT
  Sex: Female

DRUGS (1)
  1. TECFIDERA [Suspect]
     Active Substance: DIMETHYL FUMARATE
     Indication: MULTIPLE SCLEROSIS
     Route: 048
     Dates: start: 20140917

REACTIONS (6)
  - Migraine [Unknown]
  - Flushing [Unknown]
  - Pruritus [Unknown]
  - Abdominal pain upper [Unknown]
  - Rash [Unknown]
  - Insomnia [Unknown]
